FAERS Safety Report 4457216-8 (Version None)
Quarter: 2004Q3

REPORT INFORMATION
  Report Type: 
  Country: None (occurrence: None)
  Receive Date: 20040921
  Receipt Date: 20040915
  Transmission Date: 20050211
  Serious: Yes (Other)
  Sender: FDA-Public Use
  Company Number: 2004225953US

PATIENT
  Age: 76 Year
  Sex: Female
  Weight: 54.4 kg

DRUGS (7)
  1. CELEBREX [Suspect]
     Indication: RHEUMATOID ARTHRITIS
     Dosage: 200 MG, ORAL
     Route: 048
     Dates: start: 20040417, end: 20040524
  2. SYNTHROID [Concomitant]
  3. HYDROCHLOROTHIAZIDE/TRIAMTERENE [Concomitant]
  4. METOPROLOL [Concomitant]
  5. PRAVACHOL [Concomitant]
  6. METHOTREXATE [Concomitant]
  7. LISINOPRIL [Concomitant]

REACTIONS (5)
  - ANOREXIA [None]
  - CORONARY ARTERY ATHEROSCLEROSIS [None]
  - CORONARY ARTERY OCCLUSION [None]
  - LARGE INTESTINAL ULCER HAEMORRHAGE [None]
  - WEIGHT DECREASED [None]
